FAERS Safety Report 6717639-0 (Version None)
Quarter: 2010Q2

REPORT INFORMATION
  Report Type: 
  Country: None (occurrence: None)
  Receive Date: 20100510
  Receipt Date: 20100203
  Transmission Date: 20101027
  Serious: No
  Sender: FDA-Public Use
  Company Number: A0842801A

PATIENT
  Age: 14 Year
  Sex: Male

DRUGS (2)
  1. ALTABAX [Suspect]
     Indication: ECZEMA
     Route: 061
     Dates: start: 20100130, end: 20100130
  2. NO CONCURRENT MEDICATION [Concomitant]

REACTIONS (3)
  - APPLICATION SITE PAIN [None]
  - AURICULAR SWELLING [None]
  - THERMAL BURN [None]
